FAERS Safety Report 25105018 (Version 1)
Quarter: 2025Q1

REPORT INFORMATION
  Report Type: Spontaneous
  Country: US (occurrence: US)
  Receive Date: 20250321
  Receipt Date: 20250321
  Transmission Date: 20250409
  Serious: Yes (Hospitalization, Other)
  Sender: DOMPE FARMACEUTICI
  Company Number: US-FARMAPROD-202503-0827

PATIENT
  Sex: Female

DRUGS (2)
  1. OXERVATE [Suspect]
     Active Substance: CENEGERMIN-BKBJ
     Indication: Ophthalmic herpes zoster
     Route: 047
     Dates: start: 20250214
  2. ORENCIA [Concomitant]
     Active Substance: ABATACEPT

REACTIONS (3)
  - Pneumonia [Unknown]
  - Off label use [Unknown]
  - Therapy interrupted [Unknown]
